FAERS Safety Report 6781845-X (Version None)
Quarter: 2010Q2

REPORT INFORMATION
  Report Type: 
  Country: None (occurrence: None)
  Receive Date: 20100621
  Receipt Date: 20100611
  Transmission Date: 20101027
  Serious: Yes (Hospitalization)
  Sender: FDA-Public Use
  Company Number: PHHO2010FR04829

PATIENT
  Sex: Female
  Weight: 78 kg

DRUGS (3)
  1. AFINITOR [Suspect]
     Indication: BREAST CANCER
     Dosage: 1.5 MG BY DAY
     Route: 048
     Dates: start: 20090824, end: 20091106
  2. TRASTUZUMAB [Concomitant]
     Indication: BREAST CANCER
  3. PACLITAXEL [Concomitant]
     Indication: BREAST CANCER

REACTIONS (3)
  - HYPERSENSITIVITY [None]
  - LUNG DISORDER [None]
  - PYREXIA [None]
